FAERS Safety Report 5972902-6 (Version None)
Quarter: 2008Q4

REPORT INFORMATION
  Report Type: 
  Country: None (occurrence: None)
  Receive Date: 20081201
  Receipt Date: 20081120
  Transmission Date: 20090506
  Serious: Yes (Other)
  Sender: FDA-Public Use
  Company Number: PHEH2008US10463

PATIENT
  Sex: Female

DRUGS (3)
  1. BELLERGAL-S [Suspect]
     Indication: MIGRAINE
     Dosage: UNK
  2. BELLASPAS [Suspect]
  3. BELLATEL [Suspect]

REACTIONS (3)
  - DISEASE RECURRENCE [None]
  - DRUG WITHDRAWAL SYNDROME [None]
  - MIGRAINE [None]
